FAERS Safety Report 4773180-6 (Version None)
Quarter: 2005Q3

REPORT INFORMATION
  Report Type: 
  Country: None (occurrence: None)
  Receive Date: 20050919
  Receipt Date: 20050909
  Transmission Date: 20060218
  Serious: Yes (Hospitalization)
  Sender: FDA-Public Use
  Company Number: JP-MERCK-0509USA01387

PATIENT
  Sex: Female

DRUGS (3)
  1. INDOCIN [Suspect]
     Route: 054
  2. [THERAPY UNSPECIFIED] [Concomitant]
     Route: 065
  3. [THERAPY UNSPECIFIED] [Concomitant]
     Route: 065

REACTIONS (4)
  - BLOOD PRESSURE INCREASED [None]
  - DIZZINESS [None]
  - RHEUMATOID ARTHRITIS [None]
  - SYNCOPE [None]
